FAERS Safety Report 7433434-1 (Version None)
Quarter: 2011Q2

REPORT INFORMATION
  Report Type: 
  Country: None (occurrence: None)
  Receive Date: 20110422
  Receipt Date: 20110412
  Transmission Date: 20111010
  Serious: Yes (Hospitalization)
  Sender: FDA-Public Use
  Company Number: NL-MEDIMMUNE-MEDI-0013051

PATIENT
  Sex: Male
  Weight: 4.26 kg

DRUGS (8)
  1. SPIRONOLACTONE [Concomitant]
  2. HYDROCHLOROTHIAZIDE [Concomitant]
  3. ALBUTEROL SULFATE AUTOHALER [Concomitant]
  4. AMOXICILLIN [Concomitant]
  5. MACROGOL [Concomitant]
  6. VITAMIN SUPPLEMENTATION [Concomitant]
  7. SYNAGIS [Suspect]
     Route: 030
     Dates: start: 20110211, end: 20110308
  8. SYNAGIS [Suspect]
     Route: 030
     Dates: start: 20110405, end: 20110405

REACTIONS (3)
  - DYSPNOEA [None]
  - OLIGODIPSIA [None]
  - RESPIRATORY TRACT INFECTION [None]
